FAERS Safety Report 12850510 (Version 2)
Quarter: 2016Q4

REPORT INFORMATION
  Report Type: Report from Study
  Country: JP (occurrence: JP)
  Receive Date: 20161014
  Receipt Date: 20161114
  Transmission Date: 20170207
  Serious: Yes (Hospitalization)
  Sender: FDA-Public Use
  Company Number: JP-B.I. PHARMACEUTICALS,INC./RIDGEFIELD-2016-BI-53621YA

PATIENT
  Age: 73 Year
  Sex: Male
  Weight: 56 kg

DRUGS (5)
  1. LOCOID [Concomitant]
     Active Substance: HYDROCORTISONE BUTYRATE
     Indication: PRODUCT USED FOR UNKNOWN INDICATION
     Dosage: STRENGTH: 0.1%
     Route: 065
     Dates: start: 20160329
  2. HARNAL [Suspect]
     Active Substance: TAMSULOSIN HYDROCHLORIDE
     Indication: BENIGN PROSTATIC HYPERPLASIA
     Dosage: FORMULATION: ORODISPERSIBLE TABLET; STRENGTH: 0.2MG
     Route: 048
     Dates: start: 20160427, end: 20160902
  3. BLINDED MIRABEGRON [Suspect]
     Active Substance: MIRABEGRON
     Route: 048
     Dates: start: 20160910
  4. LIDOMEX [Concomitant]
     Active Substance: PREDNISOLONE VALERATE ACETATE
     Indication: PRODUCT USED FOR UNKNOWN INDICATION
     Dosage: FORMULATION: LOTION (EXCEPT LOTION FOR EYE); STRENGTH: 0.3%
     Route: 065
     Dates: start: 20160329, end: 20160807
  5. BLINDED MIRABEGRON [Suspect]
     Active Substance: MIRABEGRON
     Indication: HYPERTONIC BLADDER
     Route: 048
     Dates: start: 20160528, end: 20160902

REACTIONS (1)
  - Oesophagitis chemical [Not Recovered/Not Resolved]

NARRATIVE: CASE EVENT DATE: 20160808
